FAERS Safety Report 10186555 (Version 2)
Quarter: 2014Q2

REPORT INFORMATION
  Report Type: Spontaneous
  Country: JP (occurrence: JP)
  Receive Date: 20140521
  Receipt Date: 20140521
  Transmission Date: 20141212
  Serious: Yes (Hospitalization, Disabling)
  Sender: FDA-Public Use
  Company Number: JP-DSJP-DSJ-2014-106326

PATIENT
  Sex: 0

DRUGS (6)
  1. OLMETEC [Suspect]
     Indication: PRODUCT USED FOR UNKNOWN INDICATION
     Dosage: UNK
     Route: 065
  2. AMANTADINE [Suspect]
     Dosage: 50 MG, TID
     Route: 065
  3. AMLODIPINE [Concomitant]
     Indication: HYPERTENSION
     Dosage: 5 MG, QD
     Route: 065
     Dates: start: 20121117
  4. MAGNESIUM OXIDE [Concomitant]
     Dosage: 2 G, TID
     Route: 065
     Dates: end: 20140508
  5. PANPYOTIN [Concomitant]
     Dosage: 3 G, TID
     Route: 065
     Dates: end: 20140508
  6. TSUMURA MASHININGAN [Concomitant]
     Dosage: 2.5 G, QD
     Route: 065
     Dates: end: 20140508

REACTIONS (1)
  - Hepatic steatosis [Recovering/Resolving]
